FAERS Safety Report 6348801-7 (Version None)
Quarter: 2009Q3

REPORT INFORMATION
  Report Type: 
  Country: None (occurrence: None)
  Receive Date: 20090911
  Receipt Date: 20090908
  Transmission Date: 20100115
  Serious: Yes (Life-Threatening, Hospitalization)
  Sender: FDA-Public Use
  Company Number: FR-ASTRAZENECA-2006CG02031

PATIENT
  Age: 2588 Day
  Sex: Male
  Weight: 22 kg

DRUGS (5)
  1. DIPRIVAN [Suspect]
     Indication: INDUCTION OF ANAESTHESIA
     Route: 042
     Dates: start: 20061031, end: 20061031
  2. SUFENTANIL CITRATE [Suspect]
     Indication: GENERAL ANAESTHESIA
     Route: 042
     Dates: start: 20061031, end: 20061031
  3. SEVORANE [Suspect]
     Indication: GENERAL ANAESTHESIA
     Route: 055
     Dates: start: 20061031, end: 20061031
  4. AERIUS [Concomitant]
     Indication: URTICARIA
  5. SERETIDE [Concomitant]
     Indication: ASTHMA

REACTIONS (3)
  - ANAPHYLACTOID REACTION [None]
  - BRONCHOSPASM PARADOXICAL [None]
  - SKIN TEST NEGATIVE [None]
